FAERS Safety Report 8755847 (Version 3)
Quarter: 2012Q4

REPORT INFORMATION
  Report Type: 
  Country: US (occurrence: US)
  Receive Date: 20120827
  Receipt Date: 20121017
  Transmission Date: 20130627
  Serious: Yes (Hospitalization, Other)
  Sender: FDA-Public Use
  Company Number: US-009507513-1208USA002468

PATIENT
  Sex: Male

DRUGS (4)
  1. PEGINTRON [Suspect]
     Indication: HEPATITIS C
     Dosage: UNK
     Dates: start: 20120601
  2. REBETOL [Suspect]
     Indication: HEPATITIS C
     Dosage: UNK
     Dates: start: 20120601
  3. VICTRELIS [Suspect]
     Indication: HEPATITIS C
     Dosage: UNK
     Dates: start: 20120711
  4. INSULIN [Concomitant]
     Indication: DIABETES MELLITUS
     Dosage: UNK

REACTIONS (29)
  - Anaemia [Unknown]
  - Injection site bruising [Unknown]
  - Balance disorder [Unknown]
  - Mental impairment [Unknown]
  - Speech disorder [Unknown]
  - Dysstasia [Unknown]
  - Aphagia [Unknown]
  - Disorientation [Unknown]
  - Constipation [Unknown]
  - None [Unknown]
  - Fatigue [Unknown]
  - Retching [Unknown]
  - Pain [Unknown]
  - Pain [Unknown]
  - Influenza [Unknown]
  - None [Unknown]
  - Weight decreased [Unknown]
  - Asthenia [Unknown]
  - Dizziness [Unknown]
  - Nausea [Unknown]
  - Dizziness [Unknown]
  - Vomiting [Unknown]
  - Diarrhoea [Unknown]
  - Abdominal discomfort [Unknown]
  - None [Unknown]
  - Dehydration [Unknown]
  - Hypotension [Unknown]
  - Headache [Unknown]
  - None [Unknown]
